FAERS Safety Report 7923426-8 (Version None)
Quarter: 2011Q4

REPORT INFORMATION
  Report Type: 
  Country: None (occurrence: None)
  Receive Date: 20111117
  Receipt Date: 20110202
  Transmission Date: 20120403
  Serious: No
  Sender: FDA-Public Use
  Company Number: US-AMGEN-USASP2011006338

PATIENT
  Age: 51 Year
  Sex: Female
  Weight: 105.22 kg

DRUGS (6)
  1. VITAMIN C                          /00008001/ [Concomitant]
     Dosage: 1000 MG, UNK
  2. ENBREL [Suspect]
     Indication: PRODUCT USED FOR UNKNOWN INDICATION
     Dosage: 50 MG, 2 TIMES/WK
     Route: 058
  3. EFFEXOR [Concomitant]
     Dosage: 37.5 MG, UNK
  4. CENTRUM SILVER                     /01292501/ [Concomitant]
  5. PRILOSEC [Concomitant]
     Dosage: 20 MG, UNK
  6. FERROUS SULFATE TAB [Concomitant]

REACTIONS (1)
  - INJECTION SITE PRURITUS [None]
